FAERS Safety Report 4938739-1 (Version None)
Quarter: 2006Q1

REPORT INFORMATION
  Report Type: 
  Country: None (occurrence: None)
  Receive Date: 20060309
  Receipt Date: 20060126
  Transmission Date: 20060701
  Serious: Yes (Hospitalization)
  Sender: FDA-Public Use
  Company Number: JP-BOEHRINGER INGELHEIM PHARMACEUTICALS, INC.-2006-BP-01000NB

PATIENT
  Sex: Male
  Weight: 57.4 kg

DRUGS (8)
  1. SPIRIVA [Suspect]
     Indication: BRONCHITIS CHRONIC
     Route: 055
     Dates: start: 20060105, end: 20060118
  2. CONIEL [Concomitant]
     Indication: HYPERTENSION
     Route: 048
  3. BASEN [Concomitant]
     Indication: DIABETES MELLITUS
     Route: 048
  4. AMARYL [Concomitant]
     Indication: DIABETES MELLITUS
     Route: 048
  5. PLETAL [Concomitant]
     Indication: ARTERIAL OCCLUSIVE DISEASE
     Route: 048
  6. LENDORMIN [Concomitant]
     Indication: INSOMNIA
     Route: 048
  7. PANGREEN-P (MAGNESIUM/ALMINOSILICATE) [Concomitant]
     Indication: GASTRITIS
     Route: 048
  8. FUZULEBAN [Concomitant]
     Indication: PRODUCTIVE COUGH
     Route: 048

REACTIONS (2)
  - CARDIAC FAILURE [None]
  - RESPIRATORY DISORDER [None]
